FAERS Safety Report 20145355 (Version 1)
Quarter: 2021Q4

REPORT INFORMATION
  Report Type: Spontaneous
  Country: NL (occurrence: None)
  Receive Date: 20211203
  Receipt Date: 20211203
  Transmission Date: 20220303
  Serious: Yes (Hospitalization)
  Sender: FDA-Public Use
  Company Number: 2021A837826

PATIENT
  Age: 84 Year
  Sex: Female
  Weight: 63.2 kg

DRUGS (5)
  1. QUETIAPINE [Suspect]
     Active Substance: QUETIAPINE
     Indication: Depression
     Dosage: 3DD: MORNING 2.5 ; AFTERNOON 2 ; EVENING 1
     Route: 048
     Dates: start: 202108
  2. POLYETHYLENE GLYCOLS [Concomitant]
     Active Substance: POLYETHYLENE GLYCOLS
     Dosage: POEDER VOOR DRANK
  3. CALCIUMCARB [Concomitant]
     Dosage: KAUWTABLET, 1,25 G (GRAM)/800 EENHEDEN
  4. MELATONIN [Concomitant]
     Active Substance: MELATONIN
     Dosage: TABLET, 3 MG (MILLIGRAM)
  5. ACETAMINOPHEN [Concomitant]
     Active Substance: ACETAMINOPHEN
     Dosage: TABLET, 500 MG (MILLIGRAM)

REACTIONS (6)
  - Confusional state [Recovered/Resolved]
  - Movement disorder [Recovered/Resolved]
  - Hyponatraemia [Recovered/Resolved]
  - Musculoskeletal stiffness [Recovered/Resolved]
  - Urinary incontinence [Recovered/Resolved]
  - Anal incontinence [Recovered/Resolved]

NARRATIVE: CASE EVENT DATE: 20211115
